FAERS Safety Report 8843085 (Version 1)
Quarter: 2012Q4

REPORT INFORMATION
  Report Type: 
  Country: BG (occurrence: BG)
  Receive Date: 20121016
  Receipt Date: 20121016
  Transmission Date: 20130627
  Serious: Yes (Hospitalization)
  Sender: FDA-Public Use
  Company Number: BG-GILEAD-2012-0063032

PATIENT
  Age: 50 Year
  Sex: Female

DRUGS (4)
  1. VIREAD [Suspect]
     Indication: HEPATITIS B
     Dosage: 245 mg, QD
     Route: 048
     Dates: start: 201201, end: 20120918
  2. L-THYROX [Concomitant]
     Indication: AUTOIMMUNE THYROIDITIS
     Dosage: 50 ?g, QD
     Route: 048
     Dates: start: 2002
  3. L-THYROX [Concomitant]
     Indication: HYPOTHYROIDISM
  4. LEGALON [Concomitant]
     Indication: HEPATITIS B
     Dosage: 420 mg, QD
     Route: 048
     Dates: start: 201201

REACTIONS (1)
  - Anaemia haemolytic autoimmune [Not Recovered/Not Resolved]
